FAERS Safety Report 7562304-3 (Version None)
Quarter: 2011Q2

REPORT INFORMATION
  Report Type: 
  Country: None (occurrence: None)
  Receive Date: 20110617
  Receipt Date: 20110617
  Transmission Date: 20111010
  Serious: No
  Sender: FDA-Public Use
  Company Number: None

PATIENT
  Sex: Female
  Weight: 56.6996 kg

DRUGS (1)
  1. LIOTHYRONINE SODIUM [Suspect]
     Dosage: 5MG BID PO
     Route: 048
     Dates: start: 20110226, end: 20110307

REACTIONS (5)
  - HYPOAESTHESIA [None]
  - PRODUCT SUBSTITUTION ISSUE [None]
  - PARAESTHESIA [None]
  - FATIGUE [None]
  - TENDON PAIN [None]
